FAERS Safety Report 11174281 (Version 1)
Quarter: 2015Q2

REPORT INFORMATION
  Report Type: Spontaneous
  Country: US (occurrence: US)
  Receive Date: 20150609
  Receipt Date: 20150609
  Transmission Date: 20150821
  Serious: Yes (Death, Hospitalization)
  Sender: FDA-Public Use
  Company Number: US-BIOGENIDEC-2015BI074173

PATIENT
  Age: 70 Year
  Sex: Female

DRUGS (9)
  1. FERROUS SULFATE [Concomitant]
     Active Substance: FERROUS SULFATE\FERROUS SULFATE, DRIED
  2. GABAPENTIN. [Concomitant]
     Active Substance: GABAPENTIN
  3. ASPIRIN. [Concomitant]
     Active Substance: ASPIRIN
  4. VITAMIN A + D [Concomitant]
  5. VALPROIC ACID. [Concomitant]
     Active Substance: VALPROIC ACID
  6. BACLOFEN. [Concomitant]
     Active Substance: BACLOFEN
  7. TECFIDERA [Suspect]
     Active Substance: DIMETHYL FUMARATE
     Indication: MULTIPLE SCLEROSIS
     Route: 048
     Dates: start: 20130715, end: 20150524
  8. NIACIN CR [Concomitant]
  9. CALCIUM [Concomitant]
     Active Substance: CALCIUM

REACTIONS (1)
  - Death [Fatal]

NARRATIVE: CASE EVENT DATE: 20150524
